FAERS Safety Report 25178235 (Version 1)
Quarter: 2025Q2

REPORT INFORMATION
  Report Type: Spontaneous
  Country: AU (occurrence: AU)
  Receive Date: 20250409
  Receipt Date: 20250409
  Transmission Date: 20250717
  Serious: Yes (Other)
  Sender: ELI LILLY AND CO
  Company Number: AU-ELI_LILLY_AND_COMPANY-AU202502011000

PATIENT
  Sex: Female

DRUGS (1)
  1. VERZENIO [Suspect]
     Active Substance: ABEMACICLIB
     Indication: Breast cancer
     Dosage: 150 MG, BID
     Route: 065
     Dates: start: 202305

REACTIONS (4)
  - Pancreatic failure [Unknown]
  - Rash [Unknown]
  - Diarrhoea [Recovered/Resolved]
  - Vomiting [Unknown]
